FAERS Safety Report 5479301-4 (Version None)
Quarter: 2007Q4

REPORT INFORMATION
  Report Type: 
  Country: None (occurrence: None)
  Receive Date: 20071008
  Receipt Date: 20071002
  Transmission Date: 20080405
  Serious: Yes (Death)
  Sender: FDA-Public Use
  Company Number: FR-NOVOPROD-268134

PATIENT
  Age: 35 Year
  Sex: Female

DRUGS (1)
  1. NOVOSEVEN [Suspect]

REACTIONS (1)
  - DEATH [None]
